FAERS Safety Report 21989130 (Version 1)
Quarter: 2023Q1

REPORT INFORMATION
  Report Type: Spontaneous
  Country: IT (occurrence: IT)
  Receive Date: 20230214
  Receipt Date: 20230214
  Transmission Date: 20230417
  Serious: Yes (Hospitalization, Other)
  Sender: FDA-Public Use
  Company Number: IT-MLMSERVICE-20230201-4062677-1

PATIENT
  Age: 52 Year
  Sex: Male

DRUGS (2)
  1. LEVETIRACETAM [Suspect]
     Active Substance: LEVETIRACETAM
     Indication: Myoclonic epilepsy
     Dosage: 1000 MG, BID
     Route: 065
  2. LEVETIRACETAM [Suspect]
     Active Substance: LEVETIRACETAM
     Indication: Trisomy 21

REACTIONS (7)
  - Catatonia [Recovering/Resolving]
  - Aggression [Recovering/Resolving]
  - Loss of personal independence in daily activities [Recovered/Resolved]
  - Anxiety [Recovering/Resolving]
  - Drug intolerance [Unknown]
  - Psychiatric symptom [Unknown]
  - Off label use [Unknown]
